FAERS Safety Report 17308979 (Version 1)
Quarter: 2020Q1

REPORT INFORMATION
  Report Type: Spontaneous
  Country: US (occurrence: US)
  Receive Date: 20200123
  Receipt Date: 20200123
  Transmission Date: 20200409
  Serious: Yes (Life-Threatening)
  Sender: FDA-Public Use
  Company Number: None

PATIENT
  Age: 23 Year
  Sex: Male
  Weight: 91.8 kg

DRUGS (4)
  1. DIAZEPAM, 2MG [Concomitant]
  2. BUPRENORPHINE. [Suspect]
     Active Substance: BUPRENORPHINE
     Indication: DRUG DEPENDENCE
     Route: 060
     Dates: start: 20190901
  3. ESCITALOPRAM, 20MG [Concomitant]
     Dates: start: 20200114
  4. SERM [Concomitant]

REACTIONS (1)
  - Drug withdrawal syndrome [None]

NARRATIVE: CASE EVENT DATE: 20200121
